FAERS Safety Report 5470020-7 (Version None)
Quarter: 2007Q3

REPORT INFORMATION
  Report Type: 
  Country: None (occurrence: None)
  Receive Date: 20070927
  Receipt Date: 20070917
  Transmission Date: 20080115
  Serious: Yes (Other)
  Sender: FDA-Public Use
  Company Number: US-PFIZER INC-2007069877

PATIENT
  Sex: Female
  Weight: 77.1 kg

DRUGS (5)
  1. NORVASC [Suspect]
     Indication: HYPERTENSION
     Route: 048
     Dates: start: 20070601, end: 20070701
  2. AMLODIPINE [Suspect]
     Route: 048
     Dates: start: 20070701, end: 20070901
  3. ZETIA [Concomitant]
  4. CORGARD [Concomitant]
  5. DIOVAN [Concomitant]

REACTIONS (6)
  - BALANCE DISORDER [None]
  - BLOOD PRESSURE DIASTOLIC INCREASED [None]
  - FALL [None]
  - FEELING COLD [None]
  - PRURITUS GENERALISED [None]
  - SLEEP DISORDER [None]
